FAERS Safety Report 6153159-2 (Version None)
Quarter: 2009Q2

REPORT INFORMATION
  Report Type: 
  Country: None (occurrence: None)
  Receive Date: 20090413
  Receipt Date: 20090401
  Transmission Date: 20091009
  Serious: Yes (Hospitalization)
  Sender: FDA-Public Use
  Company Number: ES-ELI_LILLY_AND_COMPANY-ES200904001658

PATIENT
  Age: 41 Year
  Sex: Male

DRUGS (16)
  1. FORTEO [Suspect]
     Indication: OSTEOPOROSIS
     Dosage: 20 UG, UNKNOWN
     Route: 058
     Dates: start: 20090101
  2. OXYGEN [Concomitant]
     Indication: CHRONIC OBSTRUCTIVE PULMONARY DISEASE
     Dosage: UNK, OTHER (CONTINUOUS)
     Route: 065
  3. SINGULAIR [Concomitant]
     Dosage: UNK, UNKNOWN
     Route: 065
  4. ATROVENT [Concomitant]
     Dosage: UNK, UNKNOWN
     Route: 065
  5. VENTOLIN [Concomitant]
     Dosage: UNK, UNKNOWN
     Route: 065
  6. CALCIUM [Concomitant]
     Dosage: UNK, UNKNOWN
     Route: 065
  7. CARDOVAR [Concomitant]
     Dosage: UNK, UNKNOWN
     Route: 065
  8. FLIXONASE [Concomitant]
     Dosage: UNK, UNKNOWN
     Route: 065
  9. SEGURIL [Concomitant]
     Dosage: UNK, UNKNOWN
     Route: 065
  10. INSULIN [Concomitant]
     Dosage: UNK, UNKNOWN
     Route: 065
  11. LEXATIN [Concomitant]
     Dosage: UNK, UNKNOWN
     Route: 065
  12. PARACETAMOL [Concomitant]
     Dosage: UNK, UNKNOWN
     Route: 065
  13. ADIRO [Concomitant]
     Dosage: UNK, UNKNOWN
     Route: 065
  14. LEVEMIR [Concomitant]
     Dosage: UNK, UNKNOWN
     Route: 065
  15. ATRAPID [Concomitant]
     Dosage: UNK, UNKNOWN
     Route: 065
  16. ARTEDIL [Concomitant]
     Dosage: UNK, UNKNOWN
     Route: 065

REACTIONS (1)
  - CHRONIC OBSTRUCTIVE PULMONARY DISEASE [None]
